FAERS Safety Report 6719010-4 (Version None)
Quarter: 2010Q2

REPORT INFORMATION
  Report Type: 
  Country: None (occurrence: None)
  Receive Date: 20100507
  Receipt Date: 20100430
  Transmission Date: 20101027
  Serious: Yes (Hospitalization, Other)
  Sender: FDA-Public Use
  Company Number: 8043786

PATIENT
  Sex: Male
  Weight: 80.7 kg

DRUGS (10)
  1. CERTOLIZUMAB PEGOL [Suspect]
     Indication: RHEUMATOID ARTHRITIS
     Dosage: (- NR OF DOSES :4 SUBCUTANEOUS), (200 MG 1X/2 WEEKS SUBCUTANEOUS)
     Route: 058
     Dates: start: 20090112, end: 20090310
  2. CERTOLIZUMAB PEGOL [Suspect]
     Indication: RHEUMATOID ARTHRITIS
     Dosage: (- NR OF DOSES :4 SUBCUTANEOUS), (200 MG 1X/2 WEEKS SUBCUTANEOUS)
     Route: 058
     Dates: start: 20090325
  3. METHOTREXATE [Concomitant]
  4. FOLIC ACID [Concomitant]
  5. DARVOCET [Concomitant]
  6. PREDNISONE TAB [Concomitant]
  7. CLONAZEPAM [Concomitant]
  8. MELOXICAM [Concomitant]
  9. DIPHENHYDRAMINE HYDROCHLORIDE [Concomitant]
  10. ROLAIDS [Concomitant]

REACTIONS (5)
  - BACTERIAL INFECTION [None]
  - BURSITIS INFECTIVE [None]
  - CELLULITIS [None]
  - CULTURE WOUND POSITIVE [None]
  - OPEN WOUND [None]
